FAERS Safety Report 14052278 (Version 1)
Quarter: 2017Q4

REPORT INFORMATION
  Report Type: Spontaneous
  Country: US (occurrence: US)
  Receive Date: 20171006
  Receipt Date: 20171006
  Transmission Date: 20180321
  Serious: Yes (Life-Threatening, Hospitalization)
  Sender: FDA-Public Use
  Company Number: US-LPDUSPRD-20171365

PATIENT
  Age: 54 Year
  Sex: Male

DRUGS (4)
  1. FENTANYL. [Concomitant]
     Active Substance: FENTANYL
     Dosage: 37.5 MCG
     Route: 042
  2. MIDAZOLAM [Concomitant]
     Active Substance: MIDAZOLAM HYDROCHLORIDE
     Dosage: 2 MG
     Route: 042
  3. SODIUM CHLORIDE INJECTION, USP (2802-25) [Suspect]
     Active Substance: SODIUM CHLORIDE
     Dosage: 60 CC
     Route: 050
  4. LIDOCAINE HCL INJECTION, USP (0626-25) [Concomitant]
     Active Substance: LIDOCAINE HYDROCHLORIDE
     Dosage: 10 ML
     Route: 061

REACTIONS (1)
  - Atrioventricular block complete [Unknown]
